FAERS Safety Report 16140769 (Version 1)
Quarter: 2019Q2

REPORT INFORMATION
  Report Type: Other
  Country: FR (occurrence: FR)
  Receive Date: 20190401
  Receipt Date: 20190401
  Transmission Date: 20190711
  Serious: Yes (Life-Threatening)
  Sender: FDA-Public Use
  Company Number: FR-ASTELLAS-2019US012965

PATIENT
  Age: 32 Year
  Sex: Male

DRUGS (1)
  1. ISAVUCONAZOLE [Suspect]
     Active Substance: ISAVUCONAZOLE
     Indication: LUNG DISORDER
     Route: 041
     Dates: start: 20190128

REACTIONS (2)
  - Product use in unapproved indication [Unknown]
  - Cardio-respiratory arrest [Recovered/Resolved]

NARRATIVE: CASE EVENT DATE: 20190128
